FAERS Safety Report 12399324 (Version 3)
Quarter: 2016Q2

REPORT INFORMATION
  Report Type: Spontaneous
  Country: IN (occurrence: IN)
  Receive Date: 20160524
  Receipt Date: 20160628
  Transmission Date: 20160815
  Serious: Yes (Death, Life-Threatening)
  Sender: FDA-Public Use
  Company Number: IN-WATSON-2016-10454

PATIENT
  Age: 62 Year
  Sex: Male

DRUGS (9)
  1. DUOLIN                             /01033501/ [Concomitant]
     Indication: CHRONIC OBSTRUCTIVE PULMONARY DISEASE
     Dosage: 4 TIMES DAILY, RESPULES(NEBULISED BRONCHODILATATOR)
     Route: 055
  2. BUDESONIDE. [Suspect]
     Active Substance: BUDESONIDE
     Indication: CHRONIC OBSTRUCTIVE PULMONARY DISEASE
     Dosage: 2 TIMES DAILY, RESPULES (NEBULISED CORTICOSTEROID)
     Route: 055
  3. IMIPENEM [Suspect]
     Active Substance: IMIPENEM
     Indication: NOCARDIOSIS
     Dosage: 500 MG, Q6H
     Route: 065
  4. VORICONAZOLE (UNKNOWN) [Suspect]
     Active Substance: VORICONAZOLE
     Indication: ASPERGILLUS INFECTION
     Dosage: 4 MG/KG, Q12H
     Route: 065
  5. PIPERACILLIN AND TAZOBACTAM [Concomitant]
     Active Substance: PIPERACILLIN SODIUM\TAZOBACTAM SODIUM
     Indication: CHRONIC OBSTRUCTIVE PULMONARY DISEASE
     Dosage: UNK
     Route: 065
  6. HYDROCORTISONE. [Concomitant]
     Active Substance: HYDROCORTISONE
     Indication: SEPTIC SHOCK
     Dosage: 50 MG, DAILY, INJECTION
     Route: 050
  7. AMIKACIN [Concomitant]
     Active Substance: AMIKACIN
     Indication: CHRONIC OBSTRUCTIVE PULMONARY DISEASE
     Dosage: UNK
     Route: 065
  8. TRIMETHOPRIM-SULFAMETHOXAZOLE (UNKNOWN) [Suspect]
     Active Substance: SULFAMETHOXAZOLE\TRIMETHOPRIM
     Indication: NOCARDIOSIS
     Dosage: 480 MG, Q8H
     Route: 065
  9. OXYGEN. [Concomitant]
     Active Substance: OXYGEN
     Indication: CHRONIC OBSTRUCTIVE PULMONARY DISEASE
     Dosage: UNK
     Route: 065

REACTIONS (2)
  - Drug ineffective [Fatal]
  - Treatment failure [Fatal]
